FAERS Safety Report 9257037 (Version 2)
Quarter: 2013Q2

REPORT INFORMATION
  Report Type: Report from Study
  Country: CA (occurrence: CA)
  Receive Date: 20130426
  Receipt Date: 20130620
  Transmission Date: 20140414
  Serious: Yes (Other)
  Sender: FDA-Public Use
  Company Number: CA-JNJFOC-20130407983

PATIENT
  Age: 34 Year
  Sex: Male
  Weight: 81.8 kg

DRUGS (9)
  1. REMICADE [Suspect]
     Indication: COLITIS ULCERATIVE
     Dosage: 22-AUG-2013 (FUTURE DATE)
     Route: 042
  2. REMICADE [Suspect]
     Indication: COLITIS ULCERATIVE
     Route: 042
     Dates: start: 20130411
  3. REMICADE [Suspect]
     Indication: COLITIS ULCERATIVE
     Route: 042
     Dates: start: 20090422
  4. REMICADE [Suspect]
     Indication: CROHN^S DISEASE
     Dosage: 22-AUG-2013 (FUTURE DATE)
     Route: 042
  5. REMICADE [Suspect]
     Indication: CROHN^S DISEASE
     Route: 042
     Dates: start: 20130411
  6. REMICADE [Suspect]
     Indication: CROHN^S DISEASE
     Route: 042
     Dates: start: 20090422
  7. IMURAN [Concomitant]
     Route: 065
  8. ASACOL [Concomitant]
     Route: 065
  9. VSL3 [Concomitant]
     Route: 065

REACTIONS (3)
  - Hand fracture [Not Recovered/Not Resolved]
  - Limb injury [Not Recovered/Not Resolved]
  - Streptococcal infection [Unknown]
